FAERS Safety Report 4704558-4 (Version None)
Quarter: 2005Q2

REPORT INFORMATION
  Report Type: 
  Country: None (occurrence: None)
  Receive Date: 20050629
  Receipt Date: 20050617
  Transmission Date: 20051028
  Serious: Yes (Hospitalization)
  Sender: FDA-Public Use
  Company Number: 2005090337

PATIENT
  Age: 52 Year
  Sex: Female

DRUGS (1)
  1. FELDENE [Suspect]
     Indication: BACK PAIN
     Dosage: 20 MG (20 MG, 1 IN 1 D), ORAL
     Route: 048
     Dates: end: 20050616

REACTIONS (1)
  - HYPERSENSITIVITY [None]
